FAERS Safety Report 8424466-5 (Version None)
Quarter: 2012Q2

REPORT INFORMATION
  Report Type: 
  Country: None (occurrence: None)
  Receive Date: 20120610
  Receipt Date: 20120527
  Transmission Date: 20120825
  Serious: Yes (Other)
  Sender: FDA-Public Use
  Company Number: JP-BRISTOL-MYERS SQUIBB COMPANY-16656209

PATIENT
  Age: 49 Year
  Sex: Female

DRUGS (7)
  1. ABILIFY [Suspect]
     Indication: SCHIZOPHRENIA
     Dosage: 30MR-5APR  7D INCREASED TO 12MG/DAY 17AR-10MAY 24D18MG/DAY 11MY-15 5D24MG/DAY 16MY-18 3D 24-30MG
     Route: 048
     Dates: start: 20120323, end: 20120518
  2. TRIALAM [Concomitant]
     Dosage: TABS
     Dates: start: 20120321
  3. FLUNITRAZEPAM [Concomitant]
     Dosage: TABS
     Dates: start: 20120511
  4. CLONAZEPAM [Concomitant]
     Dates: start: 20120321
  5. PROMAZINE HYDROCHLORIDE [Concomitant]
     Dosage: TABS
     Dates: start: 20120321
  6. SENNOSIDE [Concomitant]
     Dates: start: 20120322
  7. BIPERIDEN HYDROCHLORIDE TAB [Concomitant]
     Dates: start: 20120331

REACTIONS (10)
  - POSTURE ABNORMAL [None]
  - BLOOD LACTATE DEHYDROGENASE INCREASED [None]
  - BLOOD CREATINE PHOSPHOKINASE INCREASED [None]
  - PSYCHIATRIC SYMPTOM [None]
  - SALIVARY HYPERSECRETION [None]
  - NEUROLEPTIC MALIGNANT SYNDROME [None]
  - PAIN [None]
  - ALANINE AMINOTRANSFERASE INCREASED [None]
  - PYREXIA [None]
  - ASPARTATE AMINOTRANSFERASE INCREASED [None]
